FAERS Safety Report 4389030-6 (Version None)
Quarter: 2004Q2

REPORT INFORMATION
  Report Type: 
  Country: None (occurrence: None)
  Receive Date: 20040628
  Receipt Date: 20040615
  Transmission Date: 20050107
  Serious: Yes (Hospitalization)
  Sender: FDA-Public Use
  Company Number: GB-JNJFOC-20040605216

PATIENT
  Sex: Male
  Weight: 85 kg

DRUGS (1)
  1. PARACETAMOL (PARACETAMOL) TABLETS [Suspect]
     Indication: PYREXIA
     Dosage: 1000 MG, 4 IN 1 DAY, ENTERAL

REACTIONS (3)
  - ACCIDENTAL OVERDOSE [None]
  - BLOOD SODIUM INCREASED [None]
  - RENAL DISORDER [None]
